FAERS Safety Report 19165584 (Version 5)
Quarter: 2021Q2

REPORT INFORMATION
  Report Type: Spontaneous
  Country: FR (occurrence: FR)
  Receive Date: 20210421
  Receipt Date: 20210526
  Transmission Date: 20210717
  Serious: Yes (Hospitalization, Other)
  Sender: FDA-Public Use
  Company Number: NVSC2021FR088771

PATIENT
  Age: 54 Year
  Sex: Female

DRUGS (9)
  1. TRASTUZUMAB. [Suspect]
     Active Substance: TRASTUZUMAB
     Indication: TARGETED CANCER THERAPY
     Dosage: UNK UNK, CYCLE RECEIVED 7 CYCLES FOLLOWED BY MAINTENANCE; PHASE
     Route: 065
  2. EVEROLIMUS. [Suspect]
     Active Substance: EVEROLIMUS
     Indication: BREAST CANCER METASTATIC
     Dosage: UNK, CYCLE RECEIVED 7 CYCLES FOLLOWED BY MAINTENANCE
     Route: 065
  3. EVEROLIMUS. [Suspect]
     Active Substance: EVEROLIMUS
     Indication: INVASIVE DUCTAL BREAST CARCINOMA
  4. TRASTUZUMAB. [Suspect]
     Active Substance: TRASTUZUMAB
     Indication: BREAST CANCER METASTATIC
     Dosage: UNK UNK, CYCLE ALONG WITH FEC100 REGIMEN FOR OVER 1 YEAR
     Route: 065
  5. TRASTUZUMAB. [Suspect]
     Active Substance: TRASTUZUMAB
     Indication: INVASIVE DUCTAL BREAST CARCINOMA
  6. TRASTUZUMAB. [Suspect]
     Active Substance: TRASTUZUMAB
     Indication: CHEMOTHERAPY
  7. PACLITAXEL. [Concomitant]
     Active Substance: PACLITAXEL
     Indication: CHEMOTHERAPY
  8. EVEROLIMUS. [Suspect]
     Active Substance: EVEROLIMUS
     Indication: CHEMOTHERAPY
  9. PACLITAXEL. [Concomitant]
     Active Substance: PACLITAXEL
     Indication: BREAST CANCER
     Dosage: 7 CYCLES
     Route: 065

REACTIONS (6)
  - Splenic lesion [Recovered/Resolved]
  - Condition aggravated [Unknown]
  - Endometriosis [Recovered/Resolved]
  - Left ventricular dysfunction [Unknown]
  - Rebound effect [Recovered/Resolved]
  - Therapeutic response unexpected [Unknown]
